FAERS Safety Report 6195591-7 (Version None)
Quarter: 2009Q2

REPORT INFORMATION
  Report Type: 
  Country: None (occurrence: None)
  Receive Date: 20090519
  Receipt Date: 20090512
  Transmission Date: 20091009
  Serious: Yes (Death, Hospitalization)
  Sender: FDA-Public Use
  Company Number: DE-CELGENEUS-062-21880-09050318

PATIENT
  Sex: Male
  Weight: 60 kg

DRUGS (19)
  1. REVLIMID [Suspect]
     Indication: PLASMACYTOMA
     Route: 048
     Dates: start: 20080701
  2. DEXAMETHASONE 4MG TAB [Concomitant]
     Indication: PLASMACYTOMA
     Route: 065
     Dates: start: 20080701
  3. CERNEVIT-12 [Concomitant]
     Route: 065
     Dates: start: 20080501
  4. DURAGESIC-100 [Concomitant]
     Route: 062
     Dates: start: 20080804
  5. LYRICA [Concomitant]
     Route: 065
     Dates: start: 20080701
  6. LYRICA [Concomitant]
     Route: 065
     Dates: start: 20080701
  7. DIFLUCAN [Concomitant]
     Indication: DRUG USE FOR UNKNOWN INDICATION
     Route: 048
     Dates: start: 20080701
  8. NULYTELY [Concomitant]
     Indication: DRUG USE FOR UNKNOWN INDICATION
     Route: 048
     Dates: start: 20080701
  9. METOCLOPRAMIDE [Concomitant]
     Indication: DRUG USE FOR UNKNOWN INDICATION
     Route: 048
     Dates: start: 20080804
  10. METOCLOPRAMIDE [Concomitant]
     Route: 065
     Dates: start: 20080827
  11. EPOETIN ALFA [Concomitant]
     Indication: DRUG USE FOR UNKNOWN INDICATION
     Dosage: 10000IU/ML
     Route: 058
     Dates: start: 20080807
  12. OMEPRAZOLE [Concomitant]
     Route: 065
     Dates: start: 20080801
  13. OMEPRAZOLE [Concomitant]
     Route: 065
     Dates: start: 20080827
  14. MARCUMAR [Concomitant]
     Indication: DRUG USE FOR UNKNOWN INDICATION
     Dosage: 3/4 AND 1/2
     Route: 065
     Dates: end: 20080828
  15. MARCUMAR [Concomitant]
     Dosage: 1/2
     Route: 065
     Dates: start: 20080828
  16. CIPROFLOXACIN HCL [Concomitant]
     Indication: CYSTITIS
     Route: 065
     Dates: start: 20080924
  17. COTRIM [Concomitant]
     Indication: DRUG USE FOR UNKNOWN INDICATION
     Route: 048
     Dates: start: 20080914
  18. PREDNISONE [Concomitant]
     Indication: DRUG USE FOR UNKNOWN INDICATION
     Route: 065
     Dates: start: 20081114
  19. PREDNISONE [Concomitant]
     Route: 065
     Dates: end: 20081114

REACTIONS (3)
  - ABSCESS INTESTINAL [None]
  - DIVERTICULUM INTESTINAL [None]
  - SKIN NECROSIS [None]
